FAERS Safety Report 8803220 (Version 1)
Quarter: 2012Q4

REPORT INFORMATION
  Report Type: 
  Country: US (occurrence: US)
  Receive Date: 20120924
  Receipt Date: 20120924
  Transmission Date: 20130627
  Serious: Yes (Hospitalization)
  Sender: FDA-Public Use
  Company Number: US-B.I. PHARMACEUTICALS,INC./RIDGEFIELD-2012-BP-23016BP

PATIENT
  Age: 77 Year
  Sex: Female
  Weight: 66 kg

DRUGS (6)
  1. SPIRIVA [Suspect]
     Indication: CHRONIC OBSTRUCTIVE PULMONARY DISEASE
     Dosage: 18 mcg
     Route: 055
     Dates: start: 2010
  2. WATER PILL [Concomitant]
     Route: 048
  3. SYMBICORT [Concomitant]
     Route: 055
  4. CARDIZEM [Concomitant]
     Indication: ATRIAL FIBRILLATION
     Route: 048
  5. CRESTOR [Concomitant]
     Indication: BLOOD CHOLESTEROL INCREASED
     Route: 048
  6. POTASSIUM [Concomitant]
     Route: 048

REACTIONS (1)
  - Dyspnoea [Recovered/Resolved]
